FAERS Safety Report 8141889-2 (Version None)
Quarter: 2012Q1

REPORT INFORMATION
  Report Type: 
  Country: None (occurrence: None)
  Receive Date: 20120216
  Receipt Date: 20120209
  Transmission Date: 20120608
  Serious: Yes (Death, Hospitalization)
  Sender: FDA-Public Use
  Company Number: US-GLAXOSMITHKLINE-A0886889A

PATIENT
  Age: 58 Year
  Sex: Male
  Weight: 90.9 kg

DRUGS (6)
  1. PREVACID [Concomitant]
  2. ZOCOR [Concomitant]
  3. GLUCOPHAGE XR [Concomitant]
  4. ZESTRIL [Concomitant]
  5. TRICOR [Concomitant]
  6. AVANDIA [Suspect]
     Indication: DIABETES MELLITUS
     Dosage: 4MG PER DAY
     Route: 048

REACTIONS (6)
  - DEATH [None]
  - CARDIAC FAILURE CONGESTIVE [None]
  - BLOOD PRESSURE ABNORMAL [None]
  - RENAL FAILURE [None]
  - ISCHAEMIC CARDIOMYOPATHY [None]
  - CONGESTIVE CARDIOMYOPATHY [None]
